FAERS Safety Report 16032450 (Version 1)
Quarter: 2019Q1

REPORT INFORMATION
  Report Type: Report from Study
  Country: None (occurrence: BR)
  Receive Date: 20190304
  Receipt Date: 20190304
  Transmission Date: 20190418
  Serious: Yes (Hospitalization, Other)
  Sender: FDA-Public Use
  Company Number: BR-ABBVIE-19K-020-2686608-00

PATIENT
  Age: 17 Year
  Sex: Female
  Weight: 54 kg

DRUGS (2)
  1. HUMIRA [Suspect]
     Active Substance: ADALIMUMAB
     Indication: CROHN^S DISEASE
     Route: 058
     Dates: start: 20180509, end: 20190118
  2. CEPHALEXIN. [Suspect]
     Active Substance: CEPHALEXIN
     Indication: PNEUMONIA
     Route: 065

REACTIONS (8)
  - Pneumonia [Recovered/Resolved]
  - Intestinal haemorrhage [Recovered/Resolved]
  - Drug ineffective [Unknown]
  - Lung disorder [Unknown]
  - Immunodeficiency [Unknown]
  - Gastrointestinal inflammation [Unknown]
  - Traumatic lung injury [Unknown]
  - Frequent bowel movements [Unknown]

NARRATIVE: CASE EVENT DATE: 20190124
